FAERS Safety Report 14791335 (Version 5)
Quarter: 2022Q1

REPORT INFORMATION
  Report Type: Spontaneous
  Country: US (occurrence: US)
  Receive Date: 20180423
  Receipt Date: 20220105
  Transmission Date: 20220423
  Serious: Yes (Other)
  Sender: FDA-Public Use
  Company Number: US-PFIZER INC-2018165147

PATIENT
  Sex: Female

DRUGS (26)
  1. PROTONIX [Suspect]
     Active Substance: PANTOPRAZOLE SODIUM
     Indication: Gastrooesophageal reflux disease
     Dosage: 40 MG
     Dates: start: 2004, end: 200608
  2. PREVACID [Suspect]
     Active Substance: LANSOPRAZOLE
     Indication: Gastrooesophageal reflux disease
     Dosage: 40 MG
  3. DEXILANT [Suspect]
     Active Substance: DEXLANSOPRAZOLE
     Indication: Gastrooesophageal reflux disease
     Dosage: 30 MG
     Dates: start: 201708, end: 201804
  4. NEXIUM [Suspect]
     Active Substance: ESOMEPRAZOLE MAGNESIUM
     Indication: Gastrooesophageal reflux disease
     Dosage: 40 MG
     Dates: start: 200510, end: 201112
  5. NEXIUM 24HR [Suspect]
     Active Substance: ESOMEPRAZOLE MAGNESIUM
     Dosage: UNK
  6. PRILOSEC [Suspect]
     Active Substance: OMEPRAZOLE MAGNESIUM
     Indication: Ulcer
     Dosage: 20 MG, 2X/DAY
     Dates: start: 200406, end: 2015
  7. PRILOSEC [Suspect]
     Active Substance: OMEPRAZOLE MAGNESIUM
     Dosage: 40 MG, 2X/DAY
     Dates: start: 201610
  8. PRILOSEC OTC [Suspect]
     Active Substance: OMEPRAZOLE MAGNESIUM
     Dosage: UNK
     Route: 048
  9. LANSOPRAZOLE [Suspect]
     Active Substance: LANSOPRAZOLE
     Dosage: 40 MG
  10. PREVACID 24 HR [Suspect]
     Active Substance: LANSOPRAZOLE
     Dosage: UNK
  11. CELEBREX [Concomitant]
     Active Substance: CELECOXIB
     Indication: Gastric disorder
     Dosage: UNK
     Dates: start: 2004, end: 2005
  12. MOBIC [Concomitant]
     Active Substance: MELOXICAM
     Indication: Pain
     Dosage: UNK
     Dates: start: 2004, end: 2005
  13. LEVAQUIN [Concomitant]
     Active Substance: LEVOFLOXACIN
     Indication: Kidney infection
     Dosage: UNK
     Dates: start: 2013
  14. LEVAQUIN [Concomitant]
     Active Substance: LEVOFLOXACIN
     Dosage: UNK
     Dates: start: 2018
  15. BACTRIM [Concomitant]
     Active Substance: SULFAMETHOXAZOLE\TRIMETHOPRIM
     Indication: Pneumonia
     Dosage: UNK
     Dates: start: 20190201, end: 20190222
  16. ZESTRIL [Concomitant]
     Active Substance: LISINOPRIL
     Indication: Hypertension
     Dosage: UNK
  17. LIPITOR [Concomitant]
     Active Substance: ATORVASTATIN CALCIUM
     Indication: Blood cholesterol abnormal
     Dosage: UNK
  18. PRAVACHOL [Concomitant]
     Active Substance: PRAVASTATIN SODIUM
     Indication: Blood cholesterol abnormal
     Dosage: UNK
     Dates: start: 201812, end: 20190319
  19. CRESTOR [Concomitant]
     Active Substance: ROSUVASTATIN CALCIUM
     Indication: Blood cholesterol abnormal
     Dosage: UNK
     Route: 048
  20. ZOCOR [Concomitant]
     Active Substance: SIMVASTATIN
     Indication: Blood cholesterol abnormal
     Dosage: UNK
     Dates: start: 2018
  21. PENTASA [Concomitant]
     Active Substance: MESALAMINE
     Indication: Gastric disorder
     Dosage: UNK
     Dates: start: 201712
  22. PENTASA [Concomitant]
     Active Substance: MESALAMINE
     Dosage: UNK
     Dates: start: 201801
  23. TYLENOL [Concomitant]
     Active Substance: ACETAMINOPHEN
     Indication: Headache
     Dosage: UNK, AS NEEDED
  24. ACETAMINOPHEN [Concomitant]
     Active Substance: ACETAMINOPHEN
     Indication: Hypersensitivity
     Dosage: UNK, AS NEEDED
  25. FAMOTIDINE [Concomitant]
     Active Substance: FAMOTIDINE
     Dosage: UNK
     Dates: start: 200307
  26. ZANTAC 150 (RANITIDINE HYDROCHLORIDE) [Concomitant]
     Active Substance: RANITIDINE HYDROCHLORIDE
     Dosage: UNK
     Dates: start: 2016, end: 2018

REACTIONS (2)
  - Chronic kidney disease [Unknown]
  - Renal failure [Not Recovered/Not Resolved]

NARRATIVE: CASE EVENT DATE: 20100101
